FAERS Safety Report 9343961 (Version 1)
Quarter: 2013Q2

REPORT INFORMATION
  Report Type: Report from Study
  Country: IN (occurrence: IN)
  Receive Date: 20130612
  Receipt Date: 20130612
  Transmission Date: 20140414
  Serious: Yes (Death)
  Sender: FDA-Public Use
  Company Number: IN-SANOFI-AVENTIS-2013SA003590

PATIENT
  Age: 58 Year
  Sex: Male

DRUGS (4)
  1. TAXOTERE [Suspect]
     Indication: PROSTATE CANCER
     Route: 042
     Dates: start: 20120810, end: 20121208
  2. ELIGARD [Concomitant]
     Indication: HORMONE THERAPY
     Dosage: FREQUENCY: EVERY 3 MONTHS.
     Route: 042
  3. MEGESTROL ACETATE [Concomitant]
     Indication: HORMONE THERAPY
     Route: 048
  4. WYSOLONE [Concomitant]
     Indication: CHEMOTHERAPY
     Route: 048

REACTIONS (3)
  - Death [Fatal]
  - Oedema [Recovering/Resolving]
  - Local swelling [Not Recovered/Not Resolved]
